FAERS Safety Report 14843962 (Version 1)
Quarter: 2018Q2

REPORT INFORMATION
  Report Type: Spontaneous
  Country: JP (occurrence: JP)
  Receive Date: 20180503
  Receipt Date: 20180503
  Transmission Date: 20180711
  Serious: Yes (Other)
  Sender: FDA-Public Use
  Company Number: PHHY2018JP074718

PATIENT

DRUGS (3)
  1. OXALIPLATIN. [Suspect]
     Active Substance: OXALIPLATIN
     Indication: COLON CANCER STAGE III
     Dosage: 85 MG/M2, UNK
     Route: 065
  2. FOLINIC ACID [Suspect]
     Active Substance: LEUCOVORIN
     Indication: COLON CANCER STAGE III
     Dosage: 75 MG/M2, UNK
     Route: 065
  3. 5-FLUOROURACIL [Suspect]
     Active Substance: FLUOROURACIL
     Indication: COLON CANCER STAGE III
     Dosage: 1.5 G/M2, UNK
     Route: 065

REACTIONS (5)
  - Respiratory disorder [Unknown]
  - Incontinence [Unknown]
  - Altered state of consciousness [Recovered/Resolved]
  - Lactic acidosis [Unknown]
  - Hyperammonaemic encephalopathy [Recovered/Resolved]
